FAERS Safety Report 7070181-2 (Version None)
Quarter: 2010Q4

REPORT INFORMATION
  Report Type: 
  Country: None (occurrence: None)
  Receive Date: 20101028
  Receipt Date: 20100928
  Transmission Date: 20110411
  Serious: No
  Sender: FDA-Public Use
  Company Number: US-WYE-H17842410

PATIENT
  Age: 75 Year
  Sex: Female
  Weight: 59.02 kg

DRUGS (2)
  1. ADVIL [Suspect]
     Indication: NECK PAIN
     Route: 048
     Dates: start: 20100918
  2. VITAMIN D [Concomitant]

REACTIONS (2)
  - DIARRHOEA [None]
  - DRUG INEFFECTIVE [None]
